FAERS Safety Report 15037161 (Version 1)
Quarter: 2018Q2

REPORT INFORMATION
  Report Type: Report from Study
  Country: CN (occurrence: CN)
  Receive Date: 20180620
  Receipt Date: 20180620
  Transmission Date: 20180711
  Serious: Yes (Hospitalization)
  Sender: FDA-Public Use
  Company Number: CN-ROCHE-2115397

PATIENT
  Age: 61 Year
  Sex: Male
  Weight: 64.5 kg

DRUGS (8)
  1. ATEZOLIZUMAB. [Suspect]
     Active Substance: ATEZOLIZUMAB
     Indication: TRANSITIONAL CELL CARCINOMA
     Dosage: ON DAY 1 OF EACH 21-DAY CYCLE?MOST RECENT DOSE PRIOR TO SAES: 28/MAR/2018 AND 09/MAY/2018
     Route: 042
     Dates: start: 20180211
  2. LEVOFLOXACIN. [Concomitant]
     Active Substance: LEVOFLOXACIN
     Route: 048
     Dates: start: 20180307
  3. PIPERACILLIN SODIUM [Concomitant]
     Active Substance: PIPERACILLIN SODIUM
     Route: 050
     Dates: start: 20180306
  4. CEFDINIR. [Concomitant]
     Active Substance: CEFDINIR
     Route: 048
     Dates: start: 20180307
  5. CARBOPLATIN. [Suspect]
     Active Substance: CARBOPLATIN
     Indication: TRANSITIONAL CELL CARCINOMA
     Dosage: MOST RECENT DOSE (1600 MG) PRIOR TO SAES: 28/MAR/2018 AND 09/MAY/2018?AREA UNDER THE CONCENTRATION-T
     Route: 042
     Dates: start: 20180211
  6. GEMCITABINE [Suspect]
     Active Substance: GEMCITABINE\GEMCITABINE HYDROCHLORIDE
     Indication: TRANSITIONAL CELL CARCINOMA
     Dosage: ON DAY 1 AND DAY 8 OF EACH 21-DAY CYCLE?MOST RECENT DOSE (1200 MG/M2) PRIOR TO SAE ON 09/MAY/2018
     Route: 042
     Dates: start: 20180211
  7. MEGESTROL ACETATE. [Concomitant]
     Active Substance: MEGESTROL ACETATE
     Route: 048
     Dates: start: 20180307
  8. TAZOBACTAM SODIUM [Concomitant]
     Active Substance: TAZOBACTAM SODIUM
     Route: 050
     Dates: start: 20180306

REACTIONS (2)
  - Bone marrow failure [Recovering/Resolving]
  - Bone marrow failure [Recovering/Resolving]

NARRATIVE: CASE EVENT DATE: 20180418
